FAERS Safety Report 8544489-5 (Version None)
Quarter: 2012Q3

REPORT INFORMATION
  Report Type: 
  Country: None (occurrence: None)
  Receive Date: 20120727
  Receipt Date: 20120720
  Transmission Date: 20120928
  Serious: Yes (Other)
  Sender: FDA-Public Use
  Company Number: US-FRI-1000029904

PATIENT
  Age: 85 Year
  Sex: Female

DRUGS (3)
  1. THYROID TAB [Suspect]
     Dosage: 60 MG
     Route: 048
     Dates: start: 20110101, end: 20120417
  2. THYROID TAB [Suspect]
     Dosage: 15 MG
     Dates: start: 20120401
  3. THYROID TAB [Suspect]
     Dosage: 30 MG
     Dates: start: 20120418, end: 20120401

REACTIONS (11)
  - HYPOTHYROIDISM [None]
  - FEELING ABNORMAL [None]
  - UPPER LIMB FRACTURE [None]
  - FALL [None]
  - LABORATORY TEST ABNORMAL [None]
  - PALPITATIONS [None]
  - PATELLA FRACTURE [None]
  - SUICIDAL IDEATION [None]
  - DIZZINESS [None]
  - GOUT [None]
  - DYSPNOEA [None]
